FAERS Safety Report 10778028 (Version 1)
Quarter: 2015Q1

REPORT INFORMATION
  Report Type: Spontaneous
  Country: US (occurrence: US)
  Receive Date: 20150209
  Receipt Date: 20150209
  Transmission Date: 20150721
  Serious: No
  Sender: FDA-Public Use
  Company Number: US-PFIZER INC-2015045123

PATIENT
  Age: 78 Year
  Sex: Male

DRUGS (1)
  1. ATORVASTATIN CALCIUM. [Suspect]
     Active Substance: ATORVASTATIN CALCIUM
     Dosage: UNK

REACTIONS (6)
  - Myalgia [Unknown]
  - Chills [Unknown]
  - Cardiac disorder [Unknown]
  - Emotional disorder [Unknown]
  - Muscle spasms [Unknown]
  - Insomnia [Unknown]
